FAERS Safety Report 6382462-6 (Version None)
Quarter: 2009Q3

REPORT INFORMATION
  Report Type: 
  Country: None (occurrence: None)
  Receive Date: 20090928
  Receipt Date: 20090928
  Transmission Date: 20100115
  Serious: No
  Sender: FDA-Public Use
  Company Number: None

PATIENT
  Age: 40 Year
  Sex: Female

DRUGS (2)
  1. TOPIRAMATE [Suspect]
     Indication: CONVULSION
     Dosage: 5 TABLETS ONCE DAILY
  2. TOPIRAMATE [Suspect]
     Indication: MIGRAINE PROPHYLAXIS
     Dosage: 5 TABLETS ONCE DAILY

REACTIONS (7)
  - CONVULSION [None]
  - HALLUCINATION [None]
  - MIGRAINE [None]
  - PRODUCT SUBSTITUTION ISSUE [None]
  - RASH [None]
  - SUICIDAL IDEATION [None]
  - TREMOR [None]
